FAERS Safety Report 8095727-7 (Version None)
Quarter: 2012Q1

REPORT INFORMATION
  Report Type: 
  Country: None (occurrence: None)
  Receive Date: 20120129
  Receipt Date: 20111228
  Transmission Date: 20120608
  Serious: No
  Sender: FDA-Public Use
  Company Number: US-ABBOTT-11P-163-0887429-00

PATIENT
  Age: 66 Year
  Sex: Male

DRUGS (8)
  1. KONSYL FIBER [Concomitant]
     Indication: PRODUCT USED FOR UNKNOWN INDICATION
     Dosage: ONE TSP. WITH 8 OZ. WATER DAILY
  2. VITAMIN D [Concomitant]
     Indication: VITAMIN SUPPLEMENTATION
  3. CO Q-10 [Concomitant]
     Indication: VITAMIN SUPPLEMENTATION
  4. HUMIRA [Suspect]
     Indication: RHEUMATOID ARTHRITIS
     Dates: start: 20090401
  5. LIPITOR [Concomitant]
     Indication: BLOOD CHOLESTEROL INCREASED
  6. MEGA RED KRILL OMEGA [Concomitant]
     Indication: MEDICAL DIET
  7. CENTRUM SILVER FOR MEN [Concomitant]
     Indication: VITAMIN SUPPLEMENTATION
  8. FOLIC [Concomitant]
     Indication: MEDICAL DIET

REACTIONS (3)
  - COUGH [None]
  - UPPER RESPIRATORY TRACT INFECTION [None]
  - THROAT IRRITATION [None]
